FAERS Safety Report 11273219 (Version 1)
Quarter: 2015Q3

REPORT INFORMATION
  Report Type: Spontaneous
  Country: US (occurrence: None)
  Receive Date: 20150714
  Receipt Date: 20150714
  Transmission Date: 20151125
  Serious: No
  Sender: FDA-Public Use
  Company Number: None

PATIENT
  Age: 43 Year
  Sex: Female
  Weight: 68.04 kg

DRUGS (9)
  1. TRI-LUMA [Suspect]
     Active Substance: FLUOCINOLONE ACETONIDE\HYDROQUINONE\TRETINOIN
     Indication: CHLOASMA
     Dosage: APPLIED TO A SURFACE, USUALLY THE SKIN
     Route: 061
  2. PRE-NATAL VITAMINS [Concomitant]
  3. BIOTIN [Concomitant]
     Active Substance: BIOTIN
  4. MAGNESIUM [Concomitant]
     Active Substance: MAGNESIUM
  5. CELEXA [Concomitant]
     Active Substance: CITALOPRAM HYDROBROMIDE
  6. FISH OIL [Concomitant]
     Active Substance: FISH OIL
  7. VITAMIN B12 [Concomitant]
     Active Substance: CYANOCOBALAMIN
  8. PANTOTHENIC ACID [Concomitant]
     Active Substance: PANTOTHENIC ACID
  9. CALCIUM [Concomitant]
     Active Substance: CALCIUM

REACTIONS (4)
  - Application site discolouration [None]
  - Anxiety [None]
  - Hair growth abnormal [None]
  - Ochronosis [None]

NARRATIVE: CASE EVENT DATE: 20150421
